FAERS Safety Report 20309272 (Version 1)
Quarter: 2022Q1

REPORT INFORMATION
  Report Type: Spontaneous
  Country: US (occurrence: US)
  Receive Date: 20220107
  Receipt Date: 20220107
  Transmission Date: 20220424
  Serious: Yes (Hospitalization, Disabling)
  Sender: FDA-Public Use
  Company Number: US-TORRENT-00011372

PATIENT
  Age: 70 Year
  Sex: Male

DRUGS (10)
  1. FLUOXETINE [Suspect]
     Active Substance: FLUOXETINE HYDROCHLORIDE
     Indication: Psychiatric evaluation
     Dosage: UNKNOWN
     Route: 065
     Dates: start: 2012
  2. LITHIUM [Suspect]
     Active Substance: LITHIUM
     Indication: Psychiatric evaluation
     Dosage: UNKNOWN
     Route: 065
     Dates: start: 2012
  3. VALPROIC ACID [Suspect]
     Active Substance: VALPROIC ACID
     Indication: Psychiatric evaluation
     Dosage: UNKNOWN
     Route: 065
     Dates: start: 2012
  4. ACETAMINOPHEN [Suspect]
     Active Substance: ACETAMINOPHEN
     Indication: Lumbar spinal stenosis
     Dosage: UNKNOWN
     Route: 065
     Dates: start: 2013
  5. TRAZODONE [Suspect]
     Active Substance: TRAZODONE HYDROCHLORIDE
     Indication: Product used for unknown indication
     Dosage: UNKNOWN
     Route: 065
  6. ESCITALOPRAM [Suspect]
     Active Substance: ESCITALOPRAM OXALATE
     Indication: Depressive symptom
     Dosage: UNKNOWN
     Route: 065
  7. SERTRALINE [Suspect]
     Active Substance: SERTRALINE HYDROCHLORIDE
     Indication: Depressive symptom
     Dosage: UNKNOWN
     Route: 065
  8. ARIPIPRAZOLE [Suspect]
     Active Substance: ARIPIPRAZOLE
     Indication: Depressed mood
     Dosage: UNKNOWN
     Route: 065
  9. LURASIDONE [Suspect]
     Active Substance: LURASIDONE
     Indication: Product used for unknown indication
     Dosage: UNKNOWN
     Route: 065
  10. GABAPENTIN [Suspect]
     Active Substance: GABAPENTIN
     Indication: Product used for unknown indication
     Dosage: UNKNOWN
     Route: 065

REACTIONS (9)
  - Fall [Unknown]
  - Gait disturbance [Not Recovered/Not Resolved]
  - Confusional state [Unknown]
  - Memory impairment [Unknown]
  - Coordination abnormal [Unknown]
  - Depression [Not Recovered/Not Resolved]
  - Tremor [Unknown]
  - Muscle rigidity [Unknown]
  - Somnolence [Unknown]

NARRATIVE: CASE EVENT DATE: 20170101
